FAERS Safety Report 20104558 (Version 1)
Quarter: 2021Q4

REPORT INFORMATION
  Report Type: Spontaneous
  Country: US (occurrence: US)
  Receive Date: 20211123
  Receipt Date: 20211123
  Transmission Date: 20220303
  Serious: Yes (Other)
  Sender: FDA-Public Use
  Company Number: US-BAXTER-2021BAX036344

PATIENT
  Age: 19 Year
  Sex: Male

DRUGS (12)
  1. FLUCONAZOLE [Suspect]
     Active Substance: FLUCONAZOLE
     Indication: Prophylaxis
     Route: 065
  2. VENETOCLAX [Suspect]
     Active Substance: VENETOCLAX
     Indication: Non-Hodgkin^s lymphoma
     Route: 048
  3. VENETOCLAX [Suspect]
     Active Substance: VENETOCLAX
     Indication: T-cell lymphoma
  4. DECITABINE [Concomitant]
     Active Substance: DECITABINE
     Indication: Non-Hodgkin^s lymphoma
     Route: 065
  5. DECITABINE [Concomitant]
     Active Substance: DECITABINE
     Indication: T-cell lymphoma
  6. VINCRISTINE [Concomitant]
     Active Substance: VINCRISTINE
     Indication: Chemotherapy
     Route: 065
  7. DAUNORUBICIN [Concomitant]
     Active Substance: DAUNORUBICIN
     Indication: Chemotherapy
     Route: 065
  8. PEGASPARGASE [Concomitant]
     Active Substance: PEGASPARGASE
     Indication: Chemotherapy
     Route: 065
  9. DEXAMETHASONE [Concomitant]
     Active Substance: DEXAMETHASONE
     Indication: Chemotherapy
     Route: 065
  10. NELARABINE [Concomitant]
     Active Substance: NELARABINE
     Indication: Chemotherapy
     Route: 065
  11. ETOPOSIDE [Concomitant]
     Active Substance: ETOPOSIDE
     Indication: Chemotherapy
     Route: 065
  12. CYTOXAN [Concomitant]
     Active Substance: CYCLOPHOSPHAMIDE
     Indication: Chemotherapy
     Route: 065

REACTIONS (2)
  - Myelosuppression [Unknown]
  - Drug interaction [Unknown]
